FAERS Safety Report 10133879 (Version 1)
Quarter: 2014Q2

REPORT INFORMATION
  Report Type: Spontaneous
  Country: US (occurrence: US)
  Receive Date: 20140428
  Receipt Date: 20140428
  Transmission Date: 20141212
  Serious: No
  Sender: FDA-Public Use
  Company Number: US-ABBVIE-13P-163-1138684-00

PATIENT
  Sex: Female
  Weight: 75.82 kg

DRUGS (1)
  1. MAVIK [Suspect]
     Indication: HYPERTENSION
     Dates: start: 2003

REACTIONS (1)
  - Blood pressure systolic increased [Not Recovered/Not Resolved]
